FAERS Safety Report 16873556 (Version 6)
Quarter: 2020Q1

REPORT INFORMATION
  Report Type: Spontaneous
  Country: US (occurrence: US)
  Receive Date: 20191001
  Receipt Date: 20200221
  Transmission Date: 20200409
  Serious: No
  Sender: FDA-Public Use
  Company Number: US-STRONGBRIDGE BIOPHARMA-2019-STR-000244

PATIENT
  Age: 48 Year
  Sex: Female

DRUGS (4)
  1. KEVEYIS [Suspect]
     Active Substance: DICHLORPHENAMIDE
     Indication: FAMILIAL PERIODIC PARALYSIS
     Dosage: 25 MG, BID
     Route: 048
     Dates: start: 20190921
  2. KEVEYIS [Suspect]
     Active Substance: DICHLORPHENAMIDE
     Dosage: 25 MG, BID
     Route: 048
     Dates: start: 20191127
  3. ADDERALL [Suspect]
     Active Substance: AMPHETAMINE ASPARTATE\AMPHETAMINE SULFATE\DEXTROAMPHETAMINE SACCHARATE\DEXTROAMPHETAMINE SULFATE
     Indication: PRODUCT USED FOR UNKNOWN INDICATION
  4. KEVEYIS [Suspect]
     Active Substance: DICHLORPHENAMIDE
     Dosage: 50 MG, BID
     Route: 048

REACTIONS (24)
  - Inflammation [Not Recovered/Not Resolved]
  - Eye haemorrhage [Recovering/Resolving]
  - Headache [Unknown]
  - Headache [Recovering/Resolving]
  - Dysphagia [Unknown]
  - Irritability [Not Recovered/Not Resolved]
  - Limb discomfort [Not Recovered/Not Resolved]
  - Headache [Not Recovered/Not Resolved]
  - Dyspnoea [Unknown]
  - Disease recurrence [Unknown]
  - Pain in jaw [Not Recovered/Not Resolved]
  - Visual impairment [Unknown]
  - Confusional state [Recovering/Resolving]
  - Photophobia [Not Recovered/Not Resolved]
  - Vision blurred [Not Recovered/Not Resolved]
  - Anxiety [Not Recovered/Not Resolved]
  - Gait disturbance [Not Recovered/Not Resolved]
  - Tongue discomfort [Unknown]
  - Pain in extremity [Not Recovered/Not Resolved]
  - Oral mucosal blistering [Recovering/Resolving]
  - Diarrhoea [Recovering/Resolving]
  - Dysgeusia [Not Recovered/Not Resolved]
  - Dry mouth [Not Recovered/Not Resolved]
  - Osteitis [Not Recovered/Not Resolved]

NARRATIVE: CASE EVENT DATE: 2019
